FAERS Safety Report 6491095-2 (Version None)
Quarter: 2009Q4

REPORT INFORMATION
  Report Type: 
  Country: None (occurrence: None)
  Receive Date: 20091211
  Receipt Date: 20091201
  Transmission Date: 20100525
  Serious: Yes (Hospitalization)
  Sender: FDA-Public Use
  Company Number: US-PFIZER INC-2009272851

PATIENT
  Sex: Male

DRUGS (1)
  1. SUTENT [Suspect]
     Indication: METASTATIC RENAL CELL CARCINOMA
     Dosage: 12.5 MG, 3X/DAY X 28 DAYS EVERY 42 DAYS
     Route: 048
     Dates: start: 20090907, end: 20091112

REACTIONS (2)
  - RECTAL HAEMORRHAGE [None]
  - RENAL HAEMORRHAGE [None]
